FAERS Safety Report 9368981 (Version 1)
Quarter: 2013Q2

REPORT INFORMATION
  Report Type: Spontaneous
  Country: IE (occurrence: None)
  Receive Date: 20130621
  Receipt Date: 20130621
  Transmission Date: 20140414
  Serious: Yes (Death, Other)
  Sender: FDA-Public Use
  Company Number: 2013P1008509

PATIENT
  Age: 1 Day
  Sex: Male

DRUGS (1)
  1. HYDROCORTISONE [Suspect]

REACTIONS (5)
  - Cardiac disorder [None]
  - General physical health deterioration [None]
  - Noonan syndrome [None]
  - Condition aggravated [None]
  - Left ventricular hypertrophy [None]
